FAERS Safety Report 11182734 (Version 1)
Quarter: 2015Q2

REPORT INFORMATION
  Report Type: Spontaneous
  Country: US (occurrence: US)
  Receive Date: 20150611
  Receipt Date: 20150611
  Transmission Date: 20150821
  Serious: Yes (Other)
  Sender: FDA-Public Use
  Company Number: US-ROXANE LABORATORIES, INC.-2015-RO-00945RO

PATIENT
  Age: 86 Year
  Sex: Female

DRUGS (2)
  1. DIAZEPAM. [Suspect]
     Active Substance: DIAZEPAM
     Indication: NEUROPSYCHIATRIC SYNDROME
     Route: 065
  2. HALOPERIDOL. [Suspect]
     Active Substance: HALOPERIDOL
     Indication: NEUROPSYCHIATRIC SYNDROME
     Route: 065

REACTIONS (3)
  - Iatrogenic injury [Recovered/Resolved]
  - Dysphagia [Unknown]
  - Weight decreased [Unknown]
